FAERS Safety Report 23982990 (Version 2)
Quarter: 2024Q3

REPORT INFORMATION
  Report Type: Report from Study
  Country: US (occurrence: US)
  Receive Date: 20240617
  Receipt Date: 20240710
  Transmission Date: 20241016
  Serious: Yes (Other)
  Sender: APELLIS PHARMACEUTICALS
  Company Number: US-APELLIS-2024-APL-0000125

PATIENT

DRUGS (1)
  1. PEGCETACOPLAN [Suspect]
     Active Substance: PEGCETACOPLAN
     Indication: Paroxysmal nocturnal haemoglobinuria
     Dosage: 1080MG/20ML TWICE WEEKLY
     Route: 058
     Dates: start: 20211103

REACTIONS (11)
  - Haemolysis [Unknown]
  - Pruritus [Unknown]
  - Dizziness postural [Unknown]
  - Asthenia [Unknown]
  - Fatigue [Unknown]
  - Chromaturia [Unknown]
  - Dyspnoea [Unknown]
  - Pruritus [Not Recovered/Not Resolved]
  - Device malfunction [Unknown]
  - Device malfunction [Unknown]
  - Underdose [Unknown]

NARRATIVE: CASE EVENT DATE: 20240705
